FAERS Safety Report 8440883-1 (Version None)
Quarter: 2012Q2

REPORT INFORMATION
  Report Type: 
  Country: None (occurrence: None)
  Receive Date: 20120615
  Receipt Date: 20110514
  Transmission Date: 20120825
  Serious: No
  Sender: FDA-Public Use
  Company Number: US-NOVEN-11US002522

PATIENT
  Sex: Female

DRUGS (3)
  1. SERTRALINE                         /01011402/ [Concomitant]
     Indication: CONVULSION
     Dosage: 125 MG, QD
     Dates: start: 20110407
  2. DAYTRANA [Suspect]
     Indication: ATTENTION DEFICIT/HYPERACTIVITY DISORDER
     Dosage: 20 MG, QD
     Route: 062
     Dates: start: 20110513
  3. SERTRALINE                         /01011402/ [Concomitant]
     Indication: ANXIETY

REACTIONS (3)
  - NO ADVERSE EVENT [None]
  - PRODUCT QUALITY ISSUE [None]
  - DRUG ADMINISTRATION ERROR [None]
